FAERS Safety Report 19793103 (Version 12)
Quarter: 2022Q1

REPORT INFORMATION
  Report Type: Report from Study
  Country: KR (occurrence: None)
  Receive Date: 20210906
  Receipt Date: 20220330
  Transmission Date: 20220423
  Serious: Yes (Hospitalization)
  Sender: FDA-Public Use
  Company Number: KR-ROCHE-2902067

PATIENT
  Age: 54 Year
  Sex: Male
  Weight: 70.5 kg

DRUGS (20)
  1. ATEZOLIZUMAB [Suspect]
     Active Substance: ATEZOLIZUMAB
     Indication: Hepatocellular carcinoma
     Dosage: ON 18/AUG/2021, HE RECEIVED MOST RECENT DOSE OF ATEZOLIZUMAB (1200 MG) PRIOR TO ONSET OF SERIOUS ADV
     Route: 041
     Dates: start: 20200916
  2. BEVACIZUMAB [Suspect]
     Active Substance: BEVACIZUMAB
     Indication: Hepatocellular carcinoma
     Dosage: ON 18/AUG/2021, HE RECEIVED MOST RECENT DOSE OF BEVACIZUMAB (990 MG) PRIOR TO ONSET OF SERIOUS ADVER
     Route: 042
     Dates: start: 20200916
  3. ENTECAVIR [Concomitant]
     Active Substance: ENTECAVIR
     Indication: Hepatitis B
     Dates: start: 2013
  4. LINAGLIPTIN\METFORMIN HYDROCHLORIDE [Concomitant]
     Active Substance: LINAGLIPTIN\METFORMIN HYDROCHLORIDE
     Indication: Type 2 diabetes mellitus
     Dosage: 2.5/850MG
     Dates: start: 20200717
  5. LANTUS SOLOSTAR [Concomitant]
     Active Substance: INSULIN GLARGINE
     Indication: Type 2 diabetes mellitus
     Dates: start: 20200831
  6. FIMASARTAN POTASSIUM TRIHYDRATE [Concomitant]
     Active Substance: FIMASARTAN POTASSIUM TRIHYDRATE
     Indication: Hypertension
     Dates: start: 20201120
  7. CARVEDILOL [Concomitant]
     Active Substance: CARVEDILOL
     Indication: Hypertension
     Dates: start: 20210326
  8. FIASP [Concomitant]
     Active Substance: INSULIN ASPART
     Indication: Type 2 diabetes mellitus
     Dates: start: 20210611
  9. ESROBAN [Concomitant]
     Indication: Eczema
     Dates: start: 20210622
  10. FAMSTER [Concomitant]
     Indication: Herpes zoster
     Dates: start: 20210727, end: 20210803
  11. COVID-19 VACCINE [Concomitant]
     Indication: Prophylaxis
     Dates: start: 20210820, end: 20210820
  12. XANAX [Concomitant]
     Active Substance: ALPRAZOLAM
     Indication: Insomnia
     Dates: start: 20210903
  13. MINOCIN [Concomitant]
     Active Substance: MINOCYCLINE HYDROCHLORIDE
     Indication: Prophylaxis
     Dates: start: 20210901
  14. SULFAMETHOXAZOLE\TRIMETHOPRIM [Concomitant]
     Active Substance: SULFAMETHOXAZOLE\TRIMETHOPRIM
     Indication: Prophylaxis
     Dates: start: 20210908
  15. PENIRAMIN [Concomitant]
     Indication: Eczema
     Dates: start: 20210727, end: 20210803
  16. VASELINE PURE [Concomitant]
     Active Substance: PETROLATUM
     Indication: Eczema
     Dates: start: 20210727
  17. DIFUCO [Concomitant]
     Indication: Eczema
     Route: 061
     Dates: start: 20210727
  18. ULTRACET [Concomitant]
     Active Substance: ACETAMINOPHEN\TRAMADOL HYDROCHLORIDE
     Indication: Eczema
     Dates: start: 20210712
  19. GABAPENTIN [Concomitant]
     Active Substance: GABAPENTIN
     Indication: Eczema
     Dates: start: 20210712
  20. PREDNISOLONE [Concomitant]
     Active Substance: PREDNISOLONE
     Indication: Eczema
     Route: 048
     Dates: start: 20210727, end: 20210803

REACTIONS (1)
  - Pyoderma gangrenosum [Not Recovered/Not Resolved]

NARRATIVE: CASE EVENT DATE: 20210830
